FAERS Safety Report 10564644 (Version 1)
Quarter: 2014Q4

REPORT INFORMATION
  Report Type: Report from Study
  Country: IE (occurrence: IE)
  Receive Date: 20141104
  Receipt Date: 20141104
  Transmission Date: 20150529
  Serious: Yes (Death)
  Sender: FDA-Public Use
  Company Number: IE-AMGEN-IRLSL2014084430

PATIENT
  Age: 90 Year
  Sex: Male

DRUGS (7)
  1. GALFER [Concomitant]
     Active Substance: IRON
  2. ARANESP [Suspect]
     Active Substance: DARBEPOETIN ALFA
     Indication: PRODUCT USED FOR UNKNOWN INDICATION
     Dosage: 30 MUG (EVERY OTHER WEEK)
     Route: 058
     Dates: start: 20130618
  3. FRUSEMIDE                          /00032601/ [Concomitant]
     Active Substance: FUROSEMIDE
  4. FOLIC ACID. [Concomitant]
     Active Substance: FOLIC ACID
  5. PANTOFLUX                          /01263204/ [Concomitant]
  6. CORDARONE [Concomitant]
     Active Substance: AMIODARONE HYDROCHLORIDE
  7. ASPIRIN                            /00002701/ [Concomitant]
     Active Substance: ASPIRIN

REACTIONS (1)
  - Death [Fatal]
